FAERS Safety Report 9840658 (Version 1)
Quarter: 2014Q1

REPORT INFORMATION
  Report Type: Spontaneous
  Country: US (occurrence: US)
  Receive Date: 20140124
  Receipt Date: 20140124
  Transmission Date: 20141002
  Serious: No
  Sender: FDA-Public Use
  Company Number: US-PFIZER INC-2014022055

PATIENT
  Age: 47 Year
  Sex: Female
  Weight: 74.38 kg

DRUGS (13)
  1. XELJANZ [Suspect]
     Indication: RHEUMATOID ARTHRITIS
     Dosage: 5 MG, 1X/DAY
     Route: 048
     Dates: start: 201305, end: 201312
  2. FOLIC ACID [Concomitant]
     Dosage: 1 MG, 2X/DAY
  3. OXYBUTYNIN ER [Concomitant]
     Dosage: 15 MG, 1X/DAY
  4. LOPERAMIDE [Concomitant]
     Dosage: 20 MG, 1X/DAY
  5. ESTRADIOL [Concomitant]
     Dosage: 0.5 MG, 1X/DAY
  6. DESMOPRESSIN [Concomitant]
     Dosage: 0.2 MG, 3X/DAY
     Route: 048
  7. OMEPRAZOLE [Concomitant]
     Dosage: 40 MG, 1X/DAY
  8. GABAPENTIN [Concomitant]
     Dosage: 900 MG (BY TAKING THREE PILLS OF 300MG), 3X/DAY
  9. CLARITIN [Concomitant]
     Indication: HYPERSENSITIVITY
     Dosage: UNK
  10. INSULIN [Concomitant]
     Indication: TYPE 1 DIABETES MELLITUS
     Dosage: UNK
  11. ALEVE [Concomitant]
     Dosage: UNK
  12. ONDANSETRON [Concomitant]
     Dosage: 4 MG, AS NEEDED
  13. ACYCLOVIR [Concomitant]
     Dosage: UNK

REACTIONS (2)
  - Vomiting [Unknown]
  - Malaise [Unknown]
